FAERS Safety Report 8557229-0 (Version None)
Quarter: 2012Q3

REPORT INFORMATION
  Report Type: 
  Country: None (occurrence: None)
  Receive Date: 20120801
  Receipt Date: 20120730
  Transmission Date: 20120928
  Serious: Yes (Other)
  Sender: FDA-Public Use
  Company Number: PHHO2012US011178

PATIENT
  Sex: Female
  Weight: 57.6 kg

DRUGS (3)
  1. ZOLEDRONOC ACID [Suspect]
     Indication: BREAST CANCER
     Dosage: 4 MG, UNK
     Route: 042
     Dates: start: 20090214, end: 20120126
  2. VITAMIN D [Concomitant]
  3. CALCIUM [Concomitant]

REACTIONS (1)
  - OSTEONECROSIS OF JAW [None]
